FAERS Safety Report 19757196 (Version 4)
Quarter: 2022Q1

REPORT INFORMATION
  Report Type: Report from Study
  Country: US (occurrence: US)
  Receive Date: 20210827
  Receipt Date: 20220120
  Transmission Date: 20220423
  Serious: Yes (Hospitalization, Other)
  Sender: FDA-Public Use
  Company Number: US-ABBVIE-21K-163-4036739-00

PATIENT
  Age: 43 Year
  Sex: Female
  Weight: 80.812 kg

DRUGS (21)
  1. HUMIRA [Suspect]
     Active Substance: ADALIMUMAB
     Indication: Rheumatoid arthritis
     Route: 058
     Dates: start: 201708, end: 202108
  2. HUMIRA [Suspect]
     Active Substance: ADALIMUMAB
     Route: 058
     Dates: start: 20210822
  3. CALCIUM CARBONATE [Concomitant]
     Active Substance: CALCIUM CARBONATE
     Indication: Hyperparathyroidism
  4. LYRICA [Concomitant]
     Active Substance: PREGABALIN
     Indication: Neuralgia
  5. LYRICA [Concomitant]
     Active Substance: PREGABALIN
     Indication: Fibromyalgia
  6. OXTELLAR XR [Concomitant]
     Active Substance: OXCARBAZEPINE
     Indication: Bipolar disorder
  7. PANTOPRAZOLE [Concomitant]
     Active Substance: PANTOPRAZOLE
     Indication: Gastrooesophageal reflux disease
  8. MONTELUKAST [Concomitant]
     Active Substance: MONTELUKAST SODIUM
     Indication: Seasonal allergy
  9. MONTELUKAST [Concomitant]
     Active Substance: MONTELUKAST SODIUM
     Indication: Asthma
  10. VITAMIN D2 [Concomitant]
     Active Substance: ERGOCALCIFEROL
     Indication: Vitamin supplementation
  11. VITAMIN D2 [Concomitant]
     Active Substance: ERGOCALCIFEROL
     Indication: Hypovitaminosis
  12. VITAMIN D2 [Concomitant]
     Active Substance: ERGOCALCIFEROL
     Indication: Osteopenia
  13. METOPROLOL [Concomitant]
     Active Substance: METOPROLOL
     Indication: Palpitations
  14. ALPHAGAN P [Concomitant]
     Active Substance: BRIMONIDINE TARTRATE
     Indication: Glaucoma
  15. ROCKLATAN [Concomitant]
     Active Substance: LATANOPROST\NETARSUDIL MESYLATE
     Indication: Glaucoma
  16. PREDNISONE [Concomitant]
     Active Substance: PREDNISONE
     Indication: Rheumatoid arthritis
  17. PREDNISONE [Concomitant]
     Active Substance: PREDNISONE
     Indication: Osteoarthritis
  18. XIIDRA [Concomitant]
     Active Substance: LIFITEGRAST
     Indication: Dry eye
  19. BELBUCA [Concomitant]
     Active Substance: BUPRENORPHINE HYDROCHLORIDE
     Indication: Pain
  20. OXYCODONE [Concomitant]
     Active Substance: OXYCODONE
     Indication: Pain
  21. MODERNA COVID-19 VACCINE [Concomitant]
     Active Substance: ELASOMERAN
     Indication: COVID-19 immunisation
     Route: 030

REACTIONS (9)
  - Intervertebral disc protrusion [Not Recovered/Not Resolved]
  - Exostosis [Recovered/Resolved]
  - Nerve compression [Not Recovered/Not Resolved]
  - Back pain [Not Recovered/Not Resolved]
  - Sepsis [Recovered/Resolved]
  - Kidney infection [Recovered/Resolved]
  - Cervicitis [Recovered/Resolved]
  - Urinary tract infection [Unknown]
  - Glucose tolerance impaired [Unknown]

NARRATIVE: CASE EVENT DATE: 20190403
